FAERS Safety Report 5093791-0 (Version None)
Quarter: 2006Q3

REPORT INFORMATION
  Report Type: 
  Country: None (occurrence: None)
  Receive Date: 20060829
  Receipt Date: 20060829
  Transmission Date: 20061208
  Serious: Yes (Hospitalization)
  Sender: FDA-Public Use
  Company Number: None

PATIENT
  Age: 60 Year
  Sex: Male
  Weight: 66.6788 kg

DRUGS (11)
  1. GEMCITABINE [Suspect]
     Indication: NEOPLASM MALIGNANT
  2. FLUOROURACIL [Suspect]
     Indication: NEOPLASM MALIGNANT
  3. ALLOPURINAOL [Concomitant]
  4. CILOSAZOL [Concomitant]
  5. DILTIAZEM HCL [Concomitant]
  6. LISINOPRIL [Concomitant]
  7. LOPERAMIDE [Concomitant]
  8. METOPROLOL TARTRATE [Concomitant]
  9. RANITIDINE [Concomitant]
  10. POTASSIUM CL [Concomitant]
  11. PROCHLOROPERAZINE [Concomitant]

REACTIONS (9)
  - DEHYDRATION [None]
  - DYSPHAGIA [None]
  - DYSPNOEA [None]
  - FALL [None]
  - HYPOKALAEMIA [None]
  - LACERATION [None]
  - OEDEMA [None]
  - POST PROCEDURAL COMPLICATION [None]
  - TONSILLAR DISORDER [None]
